FAERS Safety Report 21837251 (Version 1)
Quarter: 2023Q1

REPORT INFORMATION
  Report Type: Report from Study
  Country: US (occurrence: US)
  Receive Date: 20230109
  Receipt Date: 20230109
  Transmission Date: 20230418
  Serious: Yes (Hospitalization)
  Sender: FDA-Public Use
  Company Number: US-JNJFOC-20221159829

PATIENT
  Age: 84 Year
  Sex: Male
  Weight: 81.6 kg

DRUGS (6)
  1. MACITENTAN [Suspect]
     Active Substance: MACITENTAN
     Indication: Pulmonary arterial hypertension
     Route: 048
  2. TYVASO [Suspect]
     Active Substance: TREPROSTINIL
     Indication: Pulmonary arterial hypertension
     Route: 055
     Dates: start: 20200622
  3. TYVASO [Suspect]
     Active Substance: TREPROSTINIL
     Dosage: (12 BREATHS), FOUR TIMES A DAY (QID)
     Route: 055
  4. TYVASO [Suspect]
     Active Substance: TREPROSTINIL
     Route: 055
  5. SILDENAFIL CITRATE [Concomitant]
     Active Substance: SILDENAFIL CITRATE
  6. AMLODIPINE BESYLATE [Concomitant]
     Active Substance: AMLODIPINE BESYLATE

REACTIONS (2)
  - Fluid retention [Unknown]
  - Renal disorder [Unknown]

NARRATIVE: CASE EVENT DATE: 20221118
